FAERS Safety Report 11054558 (Version 1)
Quarter: 2015Q2

REPORT INFORMATION
  Report Type: Report from Study
  Country: GB (occurrence: None)
  Receive Date: 20150420
  Receipt Date: 20150420
  Transmission Date: 20150821
  Serious: Yes (Death)
  Sender: FDA-Public Use
  Company Number: AMAG201500290

PATIENT

DRUGS (2)
  1. RIENSO (FERUMOXYTOL) INJECTION [Suspect]
     Active Substance: FERUMOXYTOL
     Indication: IMAGING PROCEDURE
     Dosage: SINGLE
     Route: 042
     Dates: start: 20131017, end: 20131017
  2. BUSCOPAN (HYOSCINE BUTYLBROMIDE) (HYOSCINE BUTYLBROMIDE) [Concomitant]
     Active Substance: BUTYLSCOPOLAMINE

REACTIONS (5)
  - Disease progression [None]
  - Fall [None]
  - Interstitial lung disease [None]
  - Pulmonary fibrosis [None]
  - Lower respiratory tract infection [None]

NARRATIVE: CASE EVENT DATE: 20150118
